FAERS Safety Report 8838737 (Version 2)
Quarter: 2013Q1

REPORT INFORMATION
  Report Type: Spontaneous
  Country: US (occurrence: US)
  Receive Date: 20121012
  Receipt Date: 20130117
  Transmission Date: 20140127
  Serious: No
  Sender: FDA-Public Use
  Company Number: US-009507513-1208USA003433

PATIENT
  Age: 84 Year
  Sex: Male

DRUGS (2)
  1. ASMANEX TWISTHALER [Suspect]
     Dosage: 2 MG, QD
     Dates: start: 20120802
  2. GLYBURIDE [Concomitant]

REACTIONS (1)
  - Insomnia [Not Recovered/Not Resolved]
